FAERS Safety Report 6065398-X (Version None)
Quarter: 2009Q1

REPORT INFORMATION
  Report Type: 
  Country: None (occurrence: None)
  Receive Date: 20090130
  Receipt Date: 20090122
  Transmission Date: 20090719
  Serious: Yes (Hospitalization)
  Sender: FDA-Public Use
  Company Number: 2009SP001691

PATIENT
  Age: 39 Year
  Sex: Male

DRUGS (11)
  1. TEMODAL [Suspect]
     Indication: GLIOMA
     Dosage: 400 MG; PO : PO : PO
     Route: 048
     Dates: start: 20081101
  2. TEMODAL [Suspect]
     Indication: GLIOMA
     Dosage: 400 MG; PO : PO : PO
     Route: 048
     Dates: start: 20081217
  3. TEMODAL [Suspect]
     Indication: GLIOMA
     Dosage: 400 MG; PO : PO : PO
     Route: 048
     Dates: start: 20090115
  4. HERMOLEPSIN RETARD [Concomitant]
  5. KEPPRA [Concomitant]
  6. XANOR [Concomitant]
  7. ZOLPIDEM [Concomitant]
  8. PROPAVAN [Concomitant]
  9. EFFEXOR [Concomitant]
  10. DICLOFENAC [Concomitant]
  11. PAMOL [Concomitant]

REACTIONS (8)
  - DISEASE RECURRENCE [None]
  - DYSURIA [None]
  - MALIGNANT GLIOMA [None]
  - NAUSEA [None]
  - NIGHTMARE [None]
  - PANCREATITIS [None]
  - STATUS EPILEPTICUS [None]
  - VOMITING [None]
